FAERS Safety Report 7419636-9 (Version None)
Quarter: 2011Q2

REPORT INFORMATION
  Report Type: 
  Country: None (occurrence: None)
  Receive Date: 20110418
  Receipt Date: 20110412
  Transmission Date: 20111010
  Serious: Yes (Hospitalization)
  Sender: FDA-Public Use
  Company Number: BR-US-EMD SERONO, INC.-7053525

PATIENT
  Sex: Male

DRUGS (1)
  1. REBIF [Suspect]
     Indication: RELAPSING-REMITTING MULTIPLE SCLEROSIS
     Dates: start: 20080501, end: 20110101

REACTIONS (4)
  - BLINDNESS UNILATERAL [None]
  - DRUG INEFFECTIVE [None]
  - CHILLS [None]
  - CENTRAL NERVOUS SYSTEM LESION [None]
